FAERS Safety Report 16573222 (Version 1)
Quarter: 2019Q3

REPORT INFORMATION
  Report Type: Spontaneous
  Country: US (occurrence: US)
  Receive Date: 20190715
  Receipt Date: 20190715
  Transmission Date: 20191004
  Serious: Yes (Other)
  Sender: FDA-Public Use
  Company Number: US-TARO-2019TAR00477

PATIENT
  Age: 56 Year
  Sex: Female
  Weight: 90.7 kg

DRUGS (13)
  1. OMEPRAZOLE. [Concomitant]
     Active Substance: OMEPRAZOLE
     Dosage: 40 MG, 1X/DAY
  2. LAMOTRIGINE TABLETS 150 MG [Suspect]
     Active Substance: LAMOTRIGINE
     Indication: BIPOLAR II DISORDER
     Dosage: UNSPECIFIED LOWER DOSE
     Route: 048
  3. MIRTAZAPINE. [Concomitant]
     Active Substance: MIRTAZAPINE
     Dosage: UNK MG
  4. DIAZEPAM. [Concomitant]
     Active Substance: DIAZEPAM
     Dosage: 10 MG, AS NEEDED
  5. ATENOLOL. [Concomitant]
     Active Substance: ATENOLOL
     Dosage: 50 MG, 1X/DAY
  6. LEVEMIR [Concomitant]
     Active Substance: INSULIN DETEMIR
     Dosage: 24 U, 1X/DAY
  7. FAMOTIDINE. [Concomitant]
     Active Substance: FAMOTIDINE
     Dosage: 20 MG, 2X/DAY
  8. MELOXICAM. [Concomitant]
     Active Substance: MELOXICAM
     Dosage: 7.5 MG, 1X/DAY
  9. GABAPENTIN. [Concomitant]
     Active Substance: GABAPENTIN
     Dosage: 600 MG, 3X/DAY
  10. LISINOPRIL-HCTZ [Concomitant]
     Active Substance: HYDROCHLOROTHIAZIDE\LISINOPRIL
     Dosage: 1 DOSAGE UNITS, 1X/DAY
  11. ATORVASTATIN [Concomitant]
     Active Substance: ATORVASTATIN
     Dosage: 40 MG, 1X/DAY
  12. LAMOTRIGINE TABLETS 150 MG [Suspect]
     Active Substance: LAMOTRIGINE
     Dosage: 150 MG, 2X/DAY (IN THE MORNING AND EVENING)
     Route: 048
  13. FENOFIBRATE. [Concomitant]
     Active Substance: FENOFIBRATE
     Dosage: 145 MG, 1X/DAY

REACTIONS (7)
  - Withdrawal syndrome [Recovered/Resolved]
  - Drug ineffective for unapproved indication [Recovered/Resolved]
  - Product quality issue [Recovered/Resolved]
  - Choking [Recovered/Resolved]
  - Product dose omission [Recovered/Resolved]
  - Foreign body in respiratory tract [Recovered/Resolved]
  - Therapeutic response unexpected [Not Recovered/Not Resolved]

NARRATIVE: CASE EVENT DATE: 201906
